FAERS Safety Report 17100284 (Version 2)
Quarter: 2024Q4

REPORT INFORMATION
  Report Type: Spontaneous
  Country: GB (occurrence: GB)
  Receive Date: 20191202
  Receipt Date: 20241112
  Transmission Date: 20250115
  Serious: Yes (Other)
  Sender: ROCHE
  Company Number: RU-SA-2018SA394583

PATIENT
  Age: 6 Year
  Sex: Male

DRUGS (12)
  1. MYCOPHENOLATE MOFETIL [Suspect]
     Active Substance: MYCOPHENOLATE MOFETIL
     Indication: Product used for unknown indication
     Route: 065
  2. ALEMTUZUMAB [Suspect]
     Active Substance: ALEMTUZUMAB
     Indication: Allogenic stem cell transplantation
     Dosage: 1MG/KG
     Route: 041
  3. FLUDARABINE PHOSPHATE [Suspect]
     Active Substance: FLUDARABINE PHOSPHATE
     Indication: Allogenic stem cell transplantation
     Dosage: 150 MG / M2
     Route: 041
  4. ALKERAN [Suspect]
     Active Substance: MELPHALAN
     Indication: Allogenic stem cell transplantation
     Dosage: TOTAL DOSE 140 MG / M2
     Route: 042
  5. CYCLOSPORINE [Suspect]
     Active Substance: CYCLOSPORINE
     Indication: Product used for unknown indication
     Route: 065
  6. ISONIAZID [Concomitant]
     Active Substance: ISONIAZID
  7. MOXIFLOXACIN [Concomitant]
     Active Substance: MOXIFLOXACIN
  8. ETHAMBUTOL [Concomitant]
     Active Substance: ETHAMBUTOL HYDROCHLORIDE
  9. AMIKACIN [Concomitant]
     Active Substance: AMIKACIN
  10. CIPROFLOXACIN [Concomitant]
     Active Substance: CIPROFLOXACIN
  11. LINEZOLID [Concomitant]
     Active Substance: LINEZOLID
  12. INTERFERON GAMMA [Concomitant]
     Active Substance: INTERFERON GAMMA

REACTIONS (5)
  - Herpes zoster meningoencephalitis [Unknown]
  - Papilloma [Unknown]
  - Mucosal inflammation [Unknown]
  - Neutropenia [Unknown]
  - Herpes zoster [Unknown]
